FAERS Safety Report 6596948-2 (Version None)
Quarter: 2010Q1

REPORT INFORMATION
  Report Type: 
  Country: None (occurrence: None)
  Receive Date: 20100212
  Receipt Date: 20100128
  Transmission Date: 20100710
  Serious: Yes (Death)
  Sender: FDA-Public Use
  Company Number: 2010000544

PATIENT
  Sex: Female

DRUGS (1)
  1. ACTIQ [Suspect]
     Dosage: BU

REACTIONS (1)
  - NEOPLASM MALIGNANT [None]
